FAERS Safety Report 8646280 (Version 9)
Quarter: 2016Q1

REPORT INFORMATION
  Report Type: Spontaneous
  Country: US (occurrence: US)
  Receive Date: 20120702
  Receipt Date: 20160323
  Transmission Date: 20160526
  Serious: Yes (Other)
  Sender: FDA-Public Use
  Company Number: US-ASTRAZENECA-2012SE41185

PATIENT
  Age: 71 Year
  Sex: Female
  Weight: 97.5 kg

DRUGS (9)
  1. NEXIUM [Suspect]
     Active Substance: ESOMEPRAZOLE MAGNESIUM
     Indication: GASTROOESOPHAGEAL REFLUX DISEASE
     Route: 048
  2. PLAVIX [Concomitant]
     Active Substance: CLOPIDOGREL BISULFATE
     Route: 048
  3. GABAPENTIN. [Concomitant]
     Active Substance: GABAPENTIN
     Indication: PROPHYLAXIS
     Route: 048
     Dates: start: 201411
  4. ZOLOFT [Concomitant]
     Active Substance: SERTRALINE HYDROCHLORIDE
     Indication: RHEUMATOID ARTHRITIS
     Route: 048
  5. ZOLOFT [Concomitant]
     Active Substance: SERTRALINE HYDROCHLORIDE
     Indication: ABNORMAL BEHAVIOUR
     Route: 048
  6. NEXIUM [Suspect]
     Active Substance: ESOMEPRAZOLE MAGNESIUM
     Indication: GASTROOESOPHAGEAL REFLUX DISEASE
     Route: 048
  7. METOPROLOL TARTRATE. [Concomitant]
     Active Substance: METOPROLOL TARTRATE
     Indication: HEART RATE ABNORMAL
     Route: 048
  8. GABAPENTIN. [Concomitant]
     Active Substance: GABAPENTIN
     Indication: NEUROPATHY PERIPHERAL
     Route: 048
     Dates: start: 201411
  9. NEXIUM [Suspect]
     Active Substance: ESOMEPRAZOLE MAGNESIUM
     Indication: GASTROOESOPHAGEAL REFLUX DISEASE
     Route: 048

REACTIONS (26)
  - Glaucoma [Unknown]
  - Regurgitation [Unknown]
  - Drug dose omission [Unknown]
  - Dyspepsia [Unknown]
  - Malaise [Unknown]
  - Eructation [Unknown]
  - Vascular occlusion [Unknown]
  - Off label use [Not Recovered/Not Resolved]
  - Abdominal pain upper [Unknown]
  - Flatulence [Unknown]
  - Gastrooesophageal reflux disease [Unknown]
  - Intentional product misuse [Unknown]
  - Asthma [Unknown]
  - Feeling abnormal [Unknown]
  - Foreign body [Unknown]
  - Diabetes mellitus [Unknown]
  - Cataract [Unknown]
  - Dysphagia [Unknown]
  - Body height decreased [Not Recovered/Not Resolved]
  - Rheumatoid arthritis [Unknown]
  - Diarrhoea [Unknown]
  - Dysphonia [Unknown]
  - Neuropathy peripheral [Unknown]
  - Vomiting [Unknown]
  - Constipation [Recovered/Resolved]
  - Thinking abnormal [Unknown]
